FAERS Safety Report 22659163 (Version 1)
Quarter: 2023Q2

REPORT INFORMATION
  Report Type: Spontaneous
  Country: JP (occurrence: JP)
  Receive Date: 20230630
  Receipt Date: 20230630
  Transmission Date: 20230721
  Serious: Yes (Hospitalization, Other)
  Sender: FDA-Public Use
  Company Number: JP-ELI_LILLY_AND_COMPANY-JP202306014902

PATIENT
  Age: 74 Year
  Sex: Male
  Weight: 61.5 kg

DRUGS (2)
  1. GEMCITABINE HYDROCHLORIDE [Suspect]
     Active Substance: GEMCITABINE HYDROCHLORIDE
     Indication: Ureteric cancer
     Dosage: UNK UNK, CYCLICAL
     Route: 041
  2. CARBOPLATIN [Suspect]
     Active Substance: CARBOPLATIN
     Indication: Ureteric cancer
     Route: 041

REACTIONS (5)
  - Abdominal hernia [Unknown]
  - Ileus paralytic [Recovering/Resolving]
  - Liver abscess [Unknown]
  - Neutrophil count decreased [Unknown]
  - Renal impairment [Unknown]
